FAERS Safety Report 13657680 (Version 3)
Quarter: 2017Q3

REPORT INFORMATION
  Report Type: Spontaneous
  Country: BR (occurrence: BR)
  Receive Date: 20170615
  Receipt Date: 20170714
  Transmission Date: 20171127
  Serious: Yes (Other)
  Sender: FDA-Public Use
  Company Number: BR-IPSEN BIOPHARMACEUTICALS, INC.-2017-05410

PATIENT
  Age: 62 Year
  Sex: Female

DRUGS (3)
  1. PLIAGLIS [Suspect]
     Active Substance: LIDOCAINE\TETRACAINE
     Indication: APPLICATION SITE ANAESTHESIA
     Dosage: 10-30 G
     Route: 061
     Dates: start: 20170606, end: 20170606
  2. RESTYLANE PERLANE [Suspect]
     Active Substance: HYALURONIC ACID
     Indication: SKIN COSMETIC PROCEDURE
     Dosage: 1-2 ML
     Route: 061
     Dates: start: 20170606, end: 20170606
  3. DYSPORT [Suspect]
     Active Substance: ABOBOTULINUMTOXINA
     Indication: SKIN COSMETIC PROCEDURE
     Dosage: 10 UNITS
     Route: 065
     Dates: start: 20170606, end: 20170606

REACTIONS (4)
  - Pruritus [Recovered/Resolved]
  - Swelling face [Recovered/Resolved]
  - Erythema [Recovered/Resolved]
  - Deformity [Recovered/Resolved]

NARRATIVE: CASE EVENT DATE: 20170606
